FAERS Safety Report 26211414 (Version 1)
Quarter: 2025Q4

REPORT INFORMATION
  Report Type: Report from Study
  Country: ZA (occurrence: ZA)
  Receive Date: 20251230
  Receipt Date: 20251230
  Transmission Date: 20260118
  Serious: Yes (Other)
  Sender: ROCHE
  Company Number: ZA-ROCHE-10000301707

PATIENT
  Age: 62 Year
  Sex: Male

DRUGS (5)
  1. VABYSMO [Suspect]
     Active Substance: FARICIMAB-SVOA
     Indication: Diabetic retinal oedema
     Dates: start: 20240726
  2. VABYSMO [Suspect]
     Active Substance: FARICIMAB-SVOA
     Indication: Retinal disorder
  3. VABYSMO [Suspect]
     Active Substance: FARICIMAB-SVOA
     Indication: Diabetic retinopathy
  4. VABYSMO [Suspect]
     Active Substance: FARICIMAB-SVOA
     Indication: Type 1 diabetes mellitus
  5. VABYSMO [Suspect]
     Active Substance: FARICIMAB-SVOA
     Indication: Macular degeneration

REACTIONS (3)
  - Optical coherence tomography abnormal [Unknown]
  - Visual acuity reduced [Unknown]
  - Retinal thickening [Unknown]
